FAERS Safety Report 16639476 (Version 3)
Quarter: 2019Q4

REPORT INFORMATION
  Report Type: Report from Study
  Country: GB (occurrence: GB)
  Receive Date: 20190726
  Receipt Date: 20191111
  Transmission Date: 20200122
  Serious: Yes (Hospitalization)
  Sender: FDA-Public Use
  Company Number: PHHY2019GB171230

PATIENT
  Sex: Male

DRUGS (6)
  1. DABRAFENIB [Suspect]
     Active Substance: DABRAFENIB
     Dosage: 75 MG, UNK
     Route: 065
     Dates: start: 20190320
  2. DABRAFENIB [Suspect]
     Active Substance: DABRAFENIB
     Indication: PRODUCT USED FOR UNKNOWN INDICATION
     Dosage: 75 MG, UNK
     Route: 065
     Dates: start: 20190208, end: 20190219
  3. DABRAFENIB [Suspect]
     Active Substance: DABRAFENIB
     Dosage: 75 MG, UNK
     Route: 065
     Dates: start: 20190710
  4. DABRAFENIB [Suspect]
     Active Substance: DABRAFENIB
     Dosage: 75 MG, UNK
     Route: 065
     Dates: start: 20190515
  5. DABRAFENIB [Suspect]
     Active Substance: DABRAFENIB
     Dosage: 75 MG, UNK
     Route: 065
     Dates: start: 20190417
  6. DABRAFENIB [Suspect]
     Active Substance: DABRAFENIB
     Dosage: 75 MG, UNK
     Route: 065
     Dates: start: 20190612

REACTIONS (3)
  - Superinfection bacterial [Unknown]
  - Lower respiratory tract infection [Recovered/Resolved]
  - Influenza [Unknown]
